FAERS Safety Report 5157949-4 (Version None)
Quarter: 2006Q4

REPORT INFORMATION
  Report Type: 
  Country: None (occurrence: None)
  Receive Date: 20061115
  Receipt Date: 20061030
  Transmission Date: 20070319
  Serious: Yes (Hospitalization)
  Sender: FDA-Public Use
  Company Number: 232491

PATIENT
  Age: 55 Year
  Sex: Female

DRUGS (10)
  1. AVASTIN [Suspect]
     Indication: PANCREATIC CARCINOMA
     Dosage: 470 MG, Q2W, INTRAVENOUS
     Route: 042
     Dates: start: 20060919, end: 20061030
  2. ERLOTINIB [Suspect]
     Indication: PANCREATIC CARCINOMA
     Dosage: 150 MG, QD; ORAL
     Route: 048
     Dates: start: 20060919, end: 20061030
  3. IMOZOP  (ZOPICLONE) [Concomitant]
  4. EMPERAL                  (METOCLOPRAMIDE HYDROCHLORIDE) [Concomitant]
  5. PAMOL               (ACETAMINOPHEN) [Concomitant]
  6. CIPRALEX               (ESCITALOPRAM OXALATE) [Concomitant]
  7. OXAZEPAM [Concomitant]
  8. MAGNESIA                           (MAGNESIUM HYDROXIDE) [Concomitant]
  9. CONTALGIN                 (MORPHINE SULFATE) [Concomitant]
  10. POTASSIUM CHLORIDE [Concomitant]

REACTIONS (3)
  - CONFUSIONAL STATE [None]
  - MEMORY IMPAIRMENT [None]
  - METASTASES TO CENTRAL NERVOUS SYSTEM [None]
